FAERS Safety Report 18092684 (Version 1)
Quarter: 2020Q3

REPORT INFORMATION
  Report Type: Spontaneous
  Country: FR (occurrence: FR)
  Receive Date: 20200730
  Receipt Date: 20200730
  Transmission Date: 20201103
  Serious: Yes (Hospitalization)
  Sender: FDA-Public Use
  Company Number: FR-TEVA-2020-FR-1806448

PATIENT
  Age: 77 Year
  Sex: Male
  Weight: 74 kg

DRUGS (11)
  1. LANTUS [Concomitant]
     Active Substance: INSULIN GLARGINE
  2. DUOPLAVIN 75 MG/75 MG, COMPRIME PELLICULE [Concomitant]
     Active Substance: ASPIRIN\CLOPIDOGREL
  3. ACEBUTOLOL (CHLORHYDRATE D^) [Concomitant]
     Active Substance: ACEBUTOLOL HYDROCHLORIDE
  4. FLUTIFORM [Concomitant]
     Active Substance: FLUTICASONE PROPIONATE\FORMOTEROL FUMARATE
  5. IMATINIB (MESILATE D^) [Suspect]
     Active Substance: IMATINIB MESYLATE
     Indication: CHRONIC MYELOID LEUKAEMIA
     Dosage: 400 MG
     Route: 048
     Dates: start: 20180202, end: 20180227
  6. EUCREAS 50 MG/1000 MG, COMPRIME PELLICULE [Concomitant]
     Active Substance: METFORMIN HYDROCHLORIDE\VILDAGLIPTIN
  7. APIDRA [Concomitant]
     Active Substance: INSULIN GLULISINE
  8. PARACETAMOL [Suspect]
     Active Substance: ACETAMINOPHEN
     Route: 065
  9. TAHOR [Concomitant]
     Active Substance: ATORVASTATIN CALCIUM
  10. NOVONORM [Concomitant]
     Active Substance: REPAGLINIDE
  11. VENTOLINE [Concomitant]
     Active Substance: ALBUTEROL

REACTIONS (4)
  - Anaemia [Recovered/Resolved]
  - Thrombocytopenia [Recovered/Resolved]
  - Interstitial lung disease [Recovered/Resolved]
  - Nephrotic syndrome [Recovered/Resolved]

NARRATIVE: CASE EVENT DATE: 201802
